FAERS Safety Report 8158671 (Version 3)
Quarter: 2013Q4

REPORT INFORMATION
  Report Type: Spontaneous
  Country: US (occurrence: US)
  Receive Date: 20110927
  Receipt Date: 20131112
  Transmission Date: 20140711
  Serious: Yes (Hospitalization)
  Sender: FDA-Public Use
  Company Number: US-GLAXOSMITHKLINE-A0915602A

PATIENT
  Age: 58 Year
  Sex: Female

DRUGS (2)
  1. AVANDIA [Suspect]
     Indication: DIABETES MELLITUS
     Dosage: 4MG PER DAY
     Route: 048
     Dates: start: 200601, end: 200706
  2. AVANDARYL [Suspect]
     Indication: DIABETES MELLITUS
     Route: 048
     Dates: start: 200610, end: 200703

REACTIONS (4)
  - Angina pectoris [Unknown]
  - Coronary artery disease [Unknown]
  - Cardiac disorder [Unknown]
  - Cardiovascular disorder [Unknown]
